FAERS Safety Report 23835951 (Version 2)
Quarter: 2025Q2

REPORT INFORMATION
  Report Type: Spontaneous
  Country: US (occurrence: US)
  Receive Date: 20240509
  Receipt Date: 20250521
  Transmission Date: 20250716
  Serious: Yes (Other)
  Sender: NORDIC PHARMA
  Company Number: US-AMRING PHARMACEUTICALS INC.-2024US001468

PATIENT

DRUGS (1)
  1. TRANEXAMIC ACID [Suspect]
     Active Substance: TRANEXAMIC ACID
     Indication: Gastrointestinal haemorrhage
     Route: 065

REACTIONS (3)
  - Acute myocardial infarction [Unknown]
  - Coronary artery thrombosis [Unknown]
  - Chest pain [Unknown]
